FAERS Safety Report 5669848-X (Version None)
Quarter: 2008Q1

REPORT INFORMATION
  Report Type: 
  Country: None (occurrence: None)
  Receive Date: 20080317
  Receipt Date: 20080306
  Transmission Date: 20080703
  Serious: Yes (Other)
  Sender: FDA-Public Use
  Company Number: FR-PFIZER INC-2008002494

PATIENT
  Sex: Female
  Weight: 70 kg

DRUGS (4)
  1. LYRICA [Suspect]
     Indication: PAIN
     Route: 048
  2. LESCOL [Suspect]
     Indication: BLOOD CHOLESTEROL
     Route: 048
  3. ZOLPIDEM TARTRATE [Concomitant]
     Indication: INSOMNIA
     Route: 048
  4. LANSOPRAZOLE [Concomitant]
     Indication: ABDOMINAL PAIN UPPER
     Route: 048

REACTIONS (1)
  - ONYCHOMYCOSIS [None]
